FAERS Safety Report 26088378 (Version 1)
Quarter: 2025Q4

REPORT INFORMATION
  Report Type: Report from Study
  Country: US (occurrence: US)
  Receive Date: 20251125
  Receipt Date: 20251125
  Transmission Date: 20260118
  Serious: Yes (Other)
  Sender: EISAI
  Company Number: US-Eisai-EC-2025-200614

PATIENT
  Age: 51 Year
  Sex: Female

DRUGS (21)
  1. LENVIMA [Suspect]
     Active Substance: LENVATINIB
     Indication: Endometrial cancer
     Dosage: SKIPPED 10DAYS
     Route: 048
     Dates: start: 20250212
  2. LENVIMA [Suspect]
     Active Substance: LENVATINIB
     Dosage: HELD 1 WEEK
     Route: 048
     Dates: start: 20250626
  3. LENVIMA [Suspect]
     Active Substance: LENVATINIB
     Route: 048
     Dates: start: 2025
  4. ASPIRIN [Concomitant]
     Active Substance: ASPIRIN
  5. GABAPENTIN [Concomitant]
     Active Substance: GABAPENTIN
  6. LISINOPRIL [Concomitant]
     Active Substance: LISINOPRIL
  7. MAGNESIUM POW GLUCONATE [Concomitant]
  8. SERTRALINE [Concomitant]
     Active Substance: SERTRALINE HYDROCHLORIDE
  9. WELLBUTRIN SR [Concomitant]
     Active Substance: BUPROPION HYDROCHLORIDE
  10. XANAX XR [Concomitant]
     Active Substance: ALPRAZOLAM
  11. FUROSEMIDE [Concomitant]
     Active Substance: FUROSEMIDE
  12. FUROSEMIDE [Concomitant]
     Active Substance: FUROSEMIDE
  13. ACETAMINOPHEN\HYDROCODONE [Concomitant]
     Active Substance: ACETAMINOPHEN\HYDROCODONE
  14. MELOXICAM [Concomitant]
     Active Substance: MELOXICAM
  15. MOUNJARO [Concomitant]
     Active Substance: TIRZEPATIDE
     Dosage: 2.5/0.5
  16. TRIAMCINOLONE [Concomitant]
     Active Substance: TRIAMCINOLONE
  17. HYDROCHLOROTHIAZIDE\TRIAMTERENE [Concomitant]
     Active Substance: HYDROCHLOROTHIAZIDE\TRIAMTERENE
     Dosage: 37.5-25
  18. ALPRAZOLAM [Concomitant]
     Active Substance: ALPRAZOLAM
  19. DICLOFENAC [Concomitant]
     Active Substance: DICLOFENAC
  20. FLUCONAZOLE [Concomitant]
     Active Substance: FLUCONAZOLE
  21. LEVOTHYROXINE [Concomitant]
     Active Substance: LEVOTHYROXINE

REACTIONS (4)
  - Acute kidney injury [Unknown]
  - Diarrhoea [Unknown]
  - Nausea [Unknown]
  - Vomiting [Unknown]

NARRATIVE: CASE EVENT DATE: 20250101
